FAERS Safety Report 4795482-X (Version None)
Quarter: 2005Q4

REPORT INFORMATION
  Report Type: 
  Country: None (occurrence: None)
  Receive Date: 20051012
  Receipt Date: 20051004
  Transmission Date: 20060501
  Serious: Yes (Other)
  Sender: FDA-Public Use
  Company Number: US-JNJFOC-20051001315

PATIENT
  Sex: Female
  Weight: 68.04 kg

DRUGS (10)
  1. RISPERDAL [Suspect]
     Indication: BIPOLAR DISORDER
     Route: 048
  2. RISPERDAL [Suspect]
     Indication: DEPRESSION
     Route: 048
  3. LAMICTAL [Concomitant]
     Indication: BIPOLAR DISORDER
     Route: 048
  4. LAMICTAL [Concomitant]
     Indication: DEPRESSION
     Route: 048
  5. WELLBUTRIN SR [Concomitant]
     Indication: BIPOLAR DISORDER
  6. WELLBUTRIN SR [Concomitant]
     Indication: DEPRESSION
  7. NEURONTIN [Concomitant]
     Indication: BIPOLAR DISORDER
  8. NEURONTIN [Concomitant]
     Indication: DEPRESSION
  9. ESCITALOPRAM OXALATE [Concomitant]
     Indication: BIPOLAR DISORDER
     Route: 048
  10. ESCITALOPRAM OXALATE [Concomitant]
     Indication: DEPRESSION
     Route: 048

REACTIONS (2)
  - PRURITUS [None]
  - SEROTONIN SYNDROME [None]
